FAERS Safety Report 25344586 (Version 2)
Quarter: 2025Q2

REPORT INFORMATION
  Report Type: Spontaneous
  Country: JP (occurrence: JP)
  Receive Date: 20250522
  Receipt Date: 20250612
  Transmission Date: 20250717
  Serious: No
  Sender: AMGEN
  Company Number: JP-AMGEN-JPNSP2025095180

PATIENT
  Age: 6 Decade
  Sex: Female

DRUGS (3)
  1. OTEZLA [Suspect]
     Active Substance: APREMILAST
     Indication: Palmoplantar pustulosis
     Dosage: 60 MILLIGRAM, QD
     Route: 048
     Dates: start: 20250412, end: 20250426
  2. BIOTIN [Concomitant]
     Active Substance: BIOTIN
  3. MIYA-BM [Concomitant]
     Active Substance: CLOSTRIDIUM BUTYRICUM SPORES STRAIN M-55

REACTIONS (2)
  - Palmoplantar pustulosis [Recovered/Resolved]
  - Therapy interrupted [Unknown]

NARRATIVE: CASE EVENT DATE: 20250101
